FAERS Safety Report 8583665-2 (Version None)
Quarter: 2012Q3

REPORT INFORMATION
  Report Type: 
  Country: None (occurrence: None)
  Receive Date: 20120809
  Receipt Date: 20120702
  Transmission Date: 20120928
  Serious: Yes (Hospitalization)
  Sender: FDA-Public Use
  Company Number: GR-009507513-2011SP038357

PATIENT
  Age: 20 Year
  Sex: Male
  Weight: 71.2 kg

DRUGS (40)
  1. CYCLOPHOSPHAMIDE [Concomitant]
     Indication: TRANSPLANT
     Dosage: 4.2 G, QD
     Route: 042
     Dates: start: 20110717, end: 20110717
  2. ALPRAZOLAM [Concomitant]
     Indication: INSOMNIA
     Dosage: 0.2 MG, QD
     Route: 048
     Dates: start: 20110805, end: 20110805
  3. ALLOPURINOL [Concomitant]
     Indication: HYPERURICAEMIA
     Dosage: 300 MG, QD
     Route: 048
     Dates: start: 20110720, end: 20110812
  4. URSODIOL [Concomitant]
     Indication: BLOOD BILIRUBIN INCREASED
     Dosage: 250 MG, PRN
     Route: 048
     Dates: start: 20110814
  5. SODIUM CHLORIDE [Concomitant]
     Dosage: INDICATION: HYDRATION, INCREASED CREATININE
     Route: 042
     Dates: start: 20110810, end: 20110815
  6. POSACONAZOLE [Suspect]
     Indication: PRODUCT USED FOR UNKNOWN INDICATION
     Dosage: 300 MG, Q12H
     Route: 048
     Dates: start: 20110809, end: 20110816
  7. BROMAZEPAM [Concomitant]
     Indication: INSOMNIA
     Dosage: 1.5 MG, QD
     Route: 048
     Dates: start: 20110809, end: 20110812
  8. ALEMTUZUMAB [Concomitant]
     Dosage: CONDITIONING REGIMEN- INDICATION
     Route: 042
     Dates: start: 20110717, end: 20110717
  9. DEXTROSE [Concomitant]
     Indication: PROPHYLAXIS AGAINST DEHYDRATION
     Dosage: 5%
     Route: 042
     Dates: start: 20110722, end: 20110820
  10. MEROPENEM [Concomitant]
     Indication: PYREXIA
     Dosage: 1 G, TID
     Route: 042
     Dates: start: 20110826, end: 20110829
  11. POSACONAZOLE [Interacting]
     Dosage: 300 MG, QD
     Route: 048
     Dates: end: 20110824
  12. VANCOMYCIN [Concomitant]
     Indication: PRODUCT USED FOR UNKNOWN INDICATION
     Dosage: 1 G, BID
     Route: 042
     Dates: start: 20110721, end: 20110806
  13. CALCIUM CARBONATE (+) GLYCINE [Concomitant]
     Indication: HYPERPHOSPHATAEMIA
     Dosage: 420 MG, TID
     Route: 042
     Dates: start: 20110816
  14. MAGNESIUM SULFATE [Concomitant]
     Indication: HYPOMAGNESAEMIA
     Dosage: 10 ML, BID
     Route: 042
     Dates: start: 20110722, end: 20110815
  15. CEFEPIME [Concomitant]
     Indication: PYREXIA
     Dosage: 2 G, TID
     Route: 042
     Dates: start: 20110724, end: 20110809
  16. BUDESONIDE [Concomitant]
     Indication: BLOOD BILIRUBIN INCREASED
     Dosage: 3 MG, PRN
     Route: 048
     Dates: start: 20110813
  17. CYCLOSPORINE [Interacting]
     Indication: PROPHYLAXIS AGAINST GRAFT VERSUS HOST DISEASE
     Dosage: DOSE: AS NEEDED MG
     Route: 042
     Dates: start: 20110726, end: 20110804
  18. ACYCLOVIR [Concomitant]
     Indication: ANTIVIRAL PROPHYLAXIS
     Dosage: 250 MG, TID
     Route: 042
     Dates: start: 20110719, end: 20110804
  19. COLISTIMETHATE SODIUM [Concomitant]
     Indication: PYREXIA
     Dosage: 1000000 IU, TID
     Route: 042
     Dates: start: 20110724, end: 20110803
  20. MK-0805 [Concomitant]
     Indication: FLUID RETENTION
     Dosage: 20 MG, PRN
     Route: 042
     Dates: start: 20110715, end: 20110812
  21. OMEPRAZOLE [Concomitant]
     Indication: GASTRITIS PROPHYLAXIS
     Dosage: 20 MG, QD
     Route: 048
     Dates: start: 20110714, end: 20110816
  22. FOSCARNET SODIUM [Concomitant]
     Indication: CYTOMEGALOVIRUS INFECTION
     Dosage: 180 ML, BID
     Route: 042
     Dates: start: 20110808, end: 20110811
  23. CYCLOSPORINE [Interacting]
     Dosage: DOSE: AS NEEDED MG
     Route: 048
     Dates: start: 20110807, end: 20110816
  24. METHYLPREDNISOLONE [Concomitant]
     Indication: GRAFT VERSUS HOST DISEASE
     Dosage: 16 MG, PRN
     Route: 048
     Dates: start: 20110808
  25. SODIUM CHLORIDE [Concomitant]
     Dosage: 1000 ML, QD
     Route: 042
     Dates: start: 20110714, end: 20110820
  26. AMPHOTERICIN B [Concomitant]
     Indication: ANTIFUNGAL PROPHYLAXIS
     Dosage: 100 MG, QD
     Route: 042
     Dates: start: 20110715, end: 20110807
  27. ALBUMIN (HUMAN) [Concomitant]
     Indication: HYPOALBUMINAEMIA
     Dosage: 50 ML, QD
     Route: 042
     Dates: start: 20110810, end: 20110815
  28. IMMUNE GLOBULIN (HUMAN) [Concomitant]
     Indication: THROMBOCYTOPENIA
     Dosage: 10 G, QD
     Route: 042
     Dates: start: 20110818, end: 20110820
  29. IMMUNE GLOBULIN (HUMAN) [Concomitant]
     Dosage: 10 G, QD
     Route: 042
     Dates: start: 20110822, end: 20110827
  30. ETOPOSIDE [Concomitant]
     Indication: TRANSPLANT
     Dosage: 400 MG, QD
     Route: 042
     Dates: start: 20110715, end: 20110716
  31. METRONIDAZOLE [Concomitant]
     Indication: PYREXIA
     Dosage: 500 MG, TID
     Route: 042
     Dates: start: 20110724, end: 20110805
  32. BROMAZEPAM [Concomitant]
     Dosage: 3 MG, QD
     Route: 048
     Dates: start: 20110813, end: 20110813
  33. IMMUNE GLOBULIN (HUMAN) [Concomitant]
     Indication: HYPOGAMMAGLOBULINAEMIA
     Dosage: 10 G, QD
     Route: 042
     Dates: start: 20110812, end: 20110812
  34. PRILOSEC [Concomitant]
     Indication: GASTRITIS PROPHYLAXIS
     Dosage: 40 MG, QD
     Route: 042
     Dates: start: 20110714, end: 20110816
  35. POTASSIUM CHLORIDE [Concomitant]
     Indication: HYPOKALAEMIA
     Dosage: 10%
     Route: 042
     Dates: start: 20110811, end: 20110815
  36. LEVOFLOXACIN [Concomitant]
     Indication: ANTIBIOTIC PROPHYLAXIS
     Dosage: 500 MG, QD
     Route: 042
     Dates: start: 20110809, end: 20110813
  37. ACYCLOVIR [Concomitant]
     Dosage: 400 MG, BID
     Route: 048
     Dates: start: 20110806
  38. GENTAMICIN [Concomitant]
     Indication: PYREXIA
     Dosage: 80 MG, TID
     Route: 042
     Dates: start: 20110803, end: 20110808
  39. SODIUM CHLORIDE [Concomitant]
     Indication: PROPHYLAXIS AGAINST DEHYDRATION
     Dosage: INDICATION: HYDRATION, INCREASED CREATININE
     Route: 042
     Dates: start: 20110816, end: 20110820
  40. MYCOPHENOLATE MOFETIL [Concomitant]
     Indication: PROPHYLAXIS AGAINST GRAFT VERSUS HOST DISEASE
     Dosage: 1000 MG, BID
     Route: 048
     Dates: start: 20110816

REACTIONS (4)
  - DRUG INTERACTION [None]
  - EPISTAXIS [None]
  - BLOOD CREATINE INCREASED [None]
  - THROMBOCYTOPENIA [None]
